FAERS Safety Report 8225561-6 (Version None)
Quarter: 2012Q1

REPORT INFORMATION
  Report Type: 
  Country: None (occurrence: None)
  Receive Date: 20120321
  Receipt Date: 20120313
  Transmission Date: 20120608
  Serious: Yes (Hospitalization)
  Sender: FDA-Public Use
  Company Number: PHHO2011IT14857

PATIENT
  Sex: Male
  Weight: 66 kg

DRUGS (10)
  1. ENALAPRIL MALEATE [Suspect]
     Indication: CARDIAC FAILURE CHRONIC
     Dosage: CODE NOT BROKEN
     Route: 048
     Dates: start: 20110819, end: 20110827
  2. ENALAPRIL MALEATE [Suspect]
     Indication: CARDIAC FAILURE CHRONIC
     Dosage: ACTIVE RUN-IN PHASE
  3. WARFARIN SODIUM [Concomitant]
     Indication: CARDIAC PACEMAKER INSERTION
     Dosage: UNK
     Dates: start: 20100301, end: 20110826
  4. ATORVASTATIN [Concomitant]
     Indication: RENAL FAILURE CHRONIC
     Dosage: 20 MG, QD
     Route: 048
     Dates: start: 20090101, end: 20110826
  5. BLINDED NO TREATMENT RECEIVED [Suspect]
     Indication: CARDIAC FAILURE CHRONIC
     Dosage: ACTIVE RUN-IN PHASE
  6. ASPIRIN [Concomitant]
     Indication: PROPHYLAXIS
     Dosage: 100 MG, QD
     Route: 048
     Dates: start: 20070101, end: 20110826
  7. VALSARTAN [Suspect]
     Indication: CARDIAC FAILURE CHRONIC
     Dosage: ACTIVE RUN-IN PHASE
  8. FUROSEMIDE [Suspect]
     Indication: CARDIAC FAILURE
     Dosage: 50 MG, BID
     Route: 048
     Dates: start: 20110726, end: 20110826
  9. BISOPROLOL FUMARATE [Concomitant]
     Indication: CARDIAC FAILURE
     Dosage: 2.5 MG, BID
     Route: 048
     Dates: start: 20090101, end: 20110826
  10. REPAGLINIDE [Concomitant]
     Indication: DIABETES MELLITUS
     Dosage: 0.5 MG, BID
     Route: 048
     Dates: start: 20110726, end: 20110826

REACTIONS (2)
  - RENAL FAILURE ACUTE [None]
  - CONCOMITANT DISEASE PROGRESSION [None]
